FAERS Safety Report 11848829 (Version 2)
Quarter: 2016Q1

REPORT INFORMATION
  Report Type: Spontaneous
  Country: US (occurrence: US)
  Receive Date: 20151218
  Receipt Date: 20160311
  Transmission Date: 20160526
  Serious: Yes (Other)
  Sender: FDA-Public Use
  Company Number: US-BEH-2015056750

PATIENT
  Sex: Male
  Weight: 58 kg

DRUGS (25)
  1. PROGRAF [Concomitant]
     Active Substance: TACROLIMUS\TACROLIMUS ANHYDROUS
  2. PROTONIX [Concomitant]
     Active Substance: PANTOPRAZOLE SODIUM
  3. CLOTRIMAZOLE. [Concomitant]
     Active Substance: CLOTRIMAZOLE
  4. BACTRIM [Concomitant]
     Active Substance: SULFAMETHOXAZOLE\TRIMETHOPRIM
  5. HIZENTRA [Suspect]
     Active Substance: HUMAN IMMUNOGLOBULIN G
     Route: 058
     Dates: start: 20110613
  6. AMBISOME [Concomitant]
     Active Substance: AMPHOTERICIN B
  7. MULTIVITAMINS [Concomitant]
     Active Substance: VITAMINS
  8. COLISTIN [Concomitant]
     Active Substance: COLISTIN
  9. ALBUTEROL. [Concomitant]
     Active Substance: ALBUTEROL
  10. PANCREASE MT [Concomitant]
     Active Substance: PANCRELIPASE
  11. EPIPEN [Concomitant]
     Active Substance: EPINEPHRINE
  12. PRAVACHOL [Concomitant]
     Active Substance: PRAVASTATIN SODIUM
  13. PREDNISONE. [Concomitant]
     Active Substance: PREDNISONE
  14. MUCINEX [Concomitant]
     Active Substance: GUAIFENESIN
  15. CALCIUM [Concomitant]
     Active Substance: CALCIUM
  16. HIZENTRA [Suspect]
     Active Substance: HUMAN IMMUNOGLOBULIN G
     Indication: IMMUNODEFICIENCY COMMON VARIABLE
     Dosage: 2 GM 10 ML VIAL
     Route: 058
  17. DIPHENHYDRAMINE. [Concomitant]
     Active Substance: DIPHENHYDRAMINE
  18. AZITHROMYCIN ANHYDROUS. [Concomitant]
     Active Substance: AZITHROMYCIN ANHYDROUS
  19. HUMULIN NOS [Concomitant]
     Active Substance: INSULIN HUMAN
  20. VITAMIN C [Concomitant]
     Active Substance: ASCORBIC ACID
  21. RITALIN [Concomitant]
     Active Substance: METHYLPHENIDATE HYDROCHLORIDE
  22. MUPIROCIN. [Concomitant]
     Active Substance: MUPIROCIN
  23. HIZENTRA [Suspect]
     Active Substance: HUMAN IMMUNOGLOBULIN G
     Dosage: 2 GM 10 ML VIAL
     Route: 058
     Dates: start: 20110613
  24. LMX [Concomitant]
     Active Substance: LIDOCAINE
  25. VANCOMYCIN [Concomitant]
     Active Substance: VANCOMYCIN

REACTIONS (2)
  - Staphylococcal infection [Unknown]
  - Staphylococcal infection [Recovered/Resolved]
